FAERS Safety Report 23709062 (Version 1)
Quarter: 2024Q2

REPORT INFORMATION
  Report Type: Spontaneous
  Country: JP (occurrence: JP)
  Receive Date: 20240404
  Receipt Date: 20240404
  Transmission Date: 20240717
  Serious: Yes (Other)
  Sender: FDA-Public Use
  Company Number: JP-TEVA-VS-3177794

PATIENT
  Age: 40 Year
  Sex: Female

DRUGS (4)
  1. ARSENIC TRIOXIDE [Suspect]
     Active Substance: ARSENIC TRIOXIDE
     Indication: Acute promyelocytic leukaemia
     Route: 042
  2. VESANOID [Concomitant]
     Active Substance: TRETINOIN
     Indication: Acute promyelocytic leukaemia
  3. Micafungin sodium (Micafungin sodium) [Concomitant]
     Indication: Product used for unknown indication
  4. ITRACONAZOLE [Suspect]
     Active Substance: ITRACONAZOLE
     Indication: Product used for unknown indication
     Route: 065

REACTIONS (1)
  - Electrocardiogram QT prolonged [Recovering/Resolving]
